FAERS Safety Report 8401280-8 (Version None)
Quarter: 2012Q2

REPORT INFORMATION
  Report Type: 
  Country: None (occurrence: None)
  Receive Date: 20120530
  Receipt Date: 20120530
  Transmission Date: 20120825
  Serious: Yes (Hospitalization)
  Sender: FDA-Public Use
  Company Number: None

PATIENT
  Sex: Male

DRUGS (2)
  1. PROACTIV CLEANSER 2.5% BENZOYL PEROXIDE GUTHYLRENKER [Suspect]
     Indication: ACNE
     Dosage: DAILY, TOPICAL
     Route: 061
  2. PROACTIV LOTION 2.5% BENZOYL PEROXIDE, GUTHYLRENKER [Suspect]
     Indication: ACNE
     Dosage: DAILY, TOPICAL
     Route: 061

REACTIONS (4)
  - STAPHYLOCOCCAL INFECTION [None]
  - ACNE [None]
  - CONDITION AGGRAVATED [None]
  - FURUNCLE [None]
